FAERS Safety Report 6247925-2 (Version None)
Quarter: 2009Q2

REPORT INFORMATION
  Report Type: 
  Country: None (occurrence: None)
  Receive Date: 20090626
  Receipt Date: 20090616
  Transmission Date: 20091009
  Serious: Yes (Other)
  Sender: FDA-Public Use
  Company Number: PHHY2009BE24174

PATIENT
  Age: 80 Year
  Sex: Female

DRUGS (1)
  1. ACLASTA [Suspect]
     Indication: OSTEOPOROSIS
     Dosage: 5 MG, UNK
     Route: 042
     Dates: end: 20090501

REACTIONS (5)
  - ARTHRALGIA [None]
  - DIPLOPIA [None]
  - EYELID PTOSIS [None]
  - FACIAL PAIN [None]
  - JOINT SWELLING [None]
